FAERS Safety Report 4679438-3 (Version None)
Quarter: 2005Q2

REPORT INFORMATION
  Report Type: 
  Country: None (occurrence: None)
  Receive Date: 20050531
  Receipt Date: 20050516
  Transmission Date: 20051028
  Serious: Yes (Hospitalization, Other)
  Sender: FDA-Public Use
  Company Number: HQWYE671430JUL04

PATIENT
  Age: 67 Year
  Sex: Female
  Weight: 41.59 kg

DRUGS (13)
  1. CYCLOSPORINE [Suspect]
     Indication: PROPHYLAXIS AGAINST TRANSPLANT REJECTION
     Dosage: 125 IN THE MORNING, 100MG IN THE EVENING, ORAL
     Route: 048
     Dates: start: 19980219, end: 20040728
  2. CELLCEPT [Concomitant]
  3. PREDNISONE [Concomitant]
  4. NORVASC [Concomitant]
  5. CLONIDINE [Concomitant]
  6. MIACALCIN [Concomitant]
  7. MULTIVITAMINS, PLAIN (MULTIVITAMINS, PLAIN) [Concomitant]
  8. PRILOSEC [Concomitant]
  9. FOLIC ACID [Concomitant]
  10. VITAMIN B12 [Concomitant]
  11. FIBERCON (CALCIIUM POLYCARBOPHIL) [Concomitant]
  12. MIACALCIN [Concomitant]
  13. CALCIUM WITH VITAMIN D (CALCIUM PHOSPHATE/CALCIUM SODIUM LACTATE/ERGOC [Concomitant]

REACTIONS (11)
  - ABDOMINAL PAIN [None]
  - CHILLS [None]
  - CHOLESTASIS [None]
  - DRUG INEFFECTIVE [None]
  - HEPATOMEGALY [None]
  - HEPATOTOXICITY [None]
  - JAUNDICE [None]
  - LIVER FUNCTION TEST ABNORMAL [None]
  - PYREXIA [None]
  - TRANSPLANT REJECTION [None]
  - VOMITING [None]
